FAERS Safety Report 7432099-2 (Version None)
Quarter: 2011Q2

REPORT INFORMATION
  Report Type: 
  Country: None (occurrence: None)
  Receive Date: 20110422
  Receipt Date: 20110404
  Transmission Date: 20111010
  Serious: No
  Sender: FDA-Public Use
  Company Number: US-B.I. PHARMACEUTICALS,INC./RIDGEFIELD-2011-BP-10027BP

PATIENT
  Sex: Male

DRUGS (4)
  1. PRADAXA [Suspect]
     Indication: ATRIAL FIBRILLATION
     Dosage: 300 MG
     Route: 048
     Dates: start: 20110201
  2. METOPROLOL [Concomitant]
  3. INSULIN [Concomitant]
     Indication: DIABETES MELLITUS
     Route: 058
     Dates: start: 19930101
  4. PRANDIN [Concomitant]
     Indication: DIABETES MELLITUS

REACTIONS (3)
  - RASH [None]
  - PRURITUS [None]
  - DIZZINESS [None]
